FAERS Safety Report 19082729 (Version 1)
Quarter: 2021Q2

REPORT INFORMATION
  Report Type: Spontaneous
  Country: US (occurrence: US)
  Receive Date: 20210401
  Receipt Date: 20210401
  Transmission Date: 20210717
  Serious: Yes (Death, Hospitalization)
  Sender: FDA-Public Use
  Company Number: None

PATIENT
  Age: 68 Year
  Sex: Female
  Weight: 62.6 kg

DRUGS (4)
  1. LOVASTATIN. [Concomitant]
     Active Substance: LOVASTATIN
  2. GEMCITABINE HYDROCHLORIDE. [Suspect]
     Active Substance: GEMCITABINE HYDROCHLORIDE
     Dates: end: 20210324
  3. PACLITAXEL PROTEIN?BOUND PARTICLES (ALBUMIN?BOUND) [Suspect]
     Active Substance: PACLITAXEL
     Dates: end: 20210324
  4. CISPLATIN. [Suspect]
     Active Substance: CISPLATIN
     Dates: end: 20210324

REACTIONS (6)
  - Respiratory distress [None]
  - Electrocardiogram ST segment abnormal [None]
  - Pulmonary embolism [None]
  - Cardiac arrest [None]
  - Sinus tachycardia [None]
  - Pyrexia [None]

NARRATIVE: CASE EVENT DATE: 20210328
